FAERS Safety Report 11220869 (Version 2)
Quarter: 2015Q3

REPORT INFORMATION
  Report Type: Spontaneous
  Country: IE (occurrence: IE)
  Receive Date: 20150626
  Receipt Date: 20150918
  Transmission Date: 20151125
  Serious: Yes (Hospitalization, Other)
  Sender: FDA-Public Use
  Company Number: IE-ASTRAZENECA-2015SE62505

PATIENT
  Age: 55 Year
  Sex: Female

DRUGS (9)
  1. ANHYDROUS LACTOSE [Concomitant]
  2. MAGNESIUM STEARATE [Concomitant]
     Active Substance: MAGNESIUM STEARATE
  3. MICRO CRYSTALLINE CELLULOSE [Concomitant]
  4. FORXIGA [Suspect]
     Active Substance: DAPAGLIFLOZIN
     Indication: TYPE 2 DIABETES MELLITUS
     Route: 048
     Dates: start: 20141013, end: 20150717
  5. METFORMIN [Concomitant]
     Active Substance: METFORMIN HYDROCHLORIDE
  6. FORXIGA [Suspect]
     Active Substance: DAPAGLIFLOZIN
     Indication: TYPE 2 DIABETES MELLITUS
     Route: 048
     Dates: start: 201409
  7. GLICLAZIDE [Concomitant]
     Active Substance: GLICLAZIDE
     Dosage: GENERIC
  8. CROSPOVIDONE [Concomitant]
  9. SILICON DIOXIDE [Concomitant]
     Active Substance: SILICON DIOXIDE

REACTIONS (2)
  - Infection [Recovered/Resolved]
  - Diabetic ketoacidosis [Recovered/Resolved]

NARRATIVE: CASE EVENT DATE: 20150622
